FAERS Safety Report 4382605-X (Version None)
Quarter: 2004Q2

REPORT INFORMATION
  Report Type: 
  Country: None (occurrence: None)
  Receive Date: 20040617
  Receipt Date: 20040604
  Transmission Date: 20050107
  Serious: Yes (Hospitalization)
  Sender: FDA-Public Use
  Company Number: 2004214948JP

PATIENT
  Age: 74 Year
  Sex: Male
  Weight: 45.2 kg

DRUGS (7)
  1. EPIRUBICIN [Suspect]
     Indication: BLADDER CANCER
     Dosage: 70 MG, CYCLIC, IV
     Route: 042
     Dates: start: 20040511, end: 20040511
  2. METHOTREXATE [Suspect]
     Indication: BLADDER CANCER
     Dosage: 40 MG, CYCLIC, IV DRIP
     Route: 041
     Dates: start: 20040511, end: 20040511
  3. CISPLATIN [Suspect]
     Indication: BLADDER CANCER
     Dosage: 70 MG, CYCLIC, IV DRIP
     Route: 041
     Dates: start: 20040512, end: 20040512
  4. MEDICON  (DEXTROMETHORPHAN HYDROBROMIDE) [Suspect]
     Dosage: IV DRIP
     Route: 041
     Dates: start: 20040511, end: 20040511
  5. PL GRANULE (SALICYLAMIDE/ACETAMINOPHEN/CAFFEINE/PROMETHAZINE) [Suspect]
     Dosage: ORAL
     Route: 048
     Dates: start: 20040506, end: 20040510
  6. MAGNESIUM OXIDE (MAGNESIUM OXIDE) [Suspect]
     Dosage: ORAL
     Route: 048
     Dates: start: 20040422, end: 20040510
  7. S. TAC EVE (METHYLEPHEDRINE HYDROCHLORIDE-DL) [Suspect]
     Dosage: ORAL
     Route: 048

REACTIONS (2)
  - INTERSTITIAL LUNG DISEASE [None]
  - LYMPHOCYTE STIMULATION TEST POSITIVE [None]
